FAERS Safety Report 8508479 (Version 2)
Quarter: 2012Q4

REPORT INFORMATION
  Report Type: 
  Country: US (occurrence: US)
  Receive Date: 20120412
  Receipt Date: 20121009
  Transmission Date: 20130627
  Serious: No
  Sender: FDA-Public Use
  Company Number: US-ASTRAZENECA-2010SE28283

PATIENT
  Age: 59 Year
  Sex: Male

DRUGS (8)
  1. NEXIUM [Suspect]
     Route: 048
  2. PRILOSEC OTC [Suspect]
     Route: 048
  3. OMEPRAZOLE [Suspect]
     Route: 048
  4. METFORMIN [Concomitant]
  5. GLYBESIDE [Concomitant]
  6. GABAPENTEN [Concomitant]
  7. LISINOPRIL [Concomitant]
  8. PRAVASTAN [Concomitant]

REACTIONS (4)
  - Chest pain [Unknown]
  - Gastrooesophageal reflux disease [Unknown]
  - Drug dose omission [Unknown]
  - Drug ineffective [Unknown]
